FAERS Safety Report 10742960 (Version 1)
Quarter: 2015Q1

REPORT INFORMATION
  Report Type: Spontaneous
  Country: FR (occurrence: FR)
  Receive Date: 20150127
  Receipt Date: 20150127
  Transmission Date: 20150721
  Serious: Yes (Hospitalization)
  Sender: FDA-Public Use
  Company Number: FR-BAXTER-2015BAX003213

PATIENT
  Age: 31 Year
  Sex: Female

DRUGS (3)
  1. HOLOXAN 2000 MG, POUDRE POUR USAGE PARENT?RAL [Suspect]
     Active Substance: IFOSFAMIDE
     Indication: UTERINE LEIOMYOSARCOMA
     Route: 042
     Dates: start: 20141121, end: 20141122
  2. DOXORUBICINE ACCORD [Suspect]
     Active Substance: DOXORUBICIN
     Indication: UTERINE LEIOMYOSARCOMA
     Route: 042
     Dates: start: 20141121, end: 20141121
  3. CISPLATINE ACCORD [Suspect]
     Active Substance: CISPLATIN
     Indication: UTERINE LEIOMYOSARCOMA
     Route: 042
     Dates: start: 20141122, end: 20141122

REACTIONS (6)
  - Oxygen saturation decreased [Recovered/Resolved]
  - Disturbance in attention [Recovered/Resolved]
  - Brain natriuretic peptide increased [Recovered/Resolved]
  - Rash [Recovered/Resolved]
  - Wheezing [Recovered/Resolved]
  - Headache [Recovered/Resolved]

NARRATIVE: CASE EVENT DATE: 20141121
